FAERS Safety Report 4287252-6 (Version None)
Quarter: 2004Q1

REPORT INFORMATION
  Report Type: 
  Country: None (occurrence: None)
  Receive Date: 20040126
  Receipt Date: 20031017
  Transmission Date: 20041129
  Serious: No
  Sender: FDA-Public Use
  Company Number: USA030640391

PATIENT
  Age: 70 Year
  Sex: Female
  Weight: 51 kg

DRUGS (11)
  1. FORTEO [Suspect]
     Indication: OSTEOPOROSIS
     Dosage: 20 UG/DAY
     Dates: start: 20030626
  2. DYAZIDE [Concomitant]
  3. NEXIUM [Concomitant]
  4. PREMARIN [Concomitant]
  5. CLARINEX [Concomitant]
  6. ALLOPURINOL [Concomitant]
  7. ESTRACE [Concomitant]
  8. TENORMIN [Concomitant]
  9. ASPIRIN [Concomitant]
  10. ZANTAC [Concomitant]
  11. PANTINOL (APROTININ) [Concomitant]

REACTIONS (5)
  - CARDIAC FLUTTER [None]
  - DIZZINESS [None]
  - NAUSEA [None]
  - OEDEMA PERIPHERAL [None]
  - PAIN IN EXTREMITY [None]
